FAERS Safety Report 6247879-9 (Version None)
Quarter: 2009Q2

REPORT INFORMATION
  Report Type: 
  Country: None (occurrence: None)
  Receive Date: 20090626
  Receipt Date: 20090622
  Transmission Date: 20091009
  Serious: Yes (Death, Other)
  Sender: FDA-Public Use
  Company Number: JP-ABBOTT-09P-087-0581247-00

PATIENT
  Sex: Male

DRUGS (6)
  1. HUMIRA [Suspect]
     Indication: RHEUMATOID ARTHRITIS
     Route: 058
     Dates: start: 20081028
  2. HUMIRA [Suspect]
     Dates: start: 20090615, end: 20090615
  3. TACROLIMUS [Suspect]
     Indication: RHEUMATOID ARTHRITIS
     Route: 048
  4. TACROLIMUS [Suspect]
  5. PREDNISOLONE [Concomitant]
     Indication: RHEUMATOID ARTHRITIS
  6. DICLOFENAC SODIUM [Concomitant]
     Indication: RHEUMATOID ARTHRITIS

REACTIONS (3)
  - PNEUMONIA [None]
  - RENAL DISORDER [None]
  - TENDON RUPTURE [None]
